FAERS Safety Report 25124096 (Version 2)
Quarter: 2025Q2

REPORT INFORMATION
  Report Type: Spontaneous
  Country: US (occurrence: US)
  Receive Date: 20250326
  Receipt Date: 20250407
  Transmission Date: 20250716
  Serious: No
  Sender: SANOFI AVENTIS
  Company Number: US-SANOFI-02460891

PATIENT
  Age: 68 Year
  Sex: Male

DRUGS (1)
  1. SOLIQUA 100/33 [Suspect]
     Active Substance: INSULIN GLARGINE\LIXISENATIDE
     Indication: Type 2 diabetes mellitus
     Dosage: 26 IU, QD

REACTIONS (5)
  - Injection site pain [Unknown]
  - Injection site injury [Unknown]
  - Device operational issue [Unknown]
  - Visual impairment [Unknown]
  - Product dispensing issue [Unknown]
